FAERS Safety Report 9019698 (Version 1)
Quarter: 2013Q1

REPORT INFORMATION
  Report Type: Report from Study
  Country: US (occurrence: US)
  Receive Date: 20130118
  Receipt Date: 20130118
  Transmission Date: 20140127
  Serious: Yes (Hospitalization)
  Sender: FDA-Public Use
  Company Number: US-EISAI INC-E7389-03442-CLI-US

PATIENT
  Age: 45 None
  Sex: Female
  Weight: 72 kg

DRUGS (9)
  1. E7389 (BOLD) [Suspect]
     Indication: HER-2 POSITIVE BREAST CANCER
     Route: 041
     Dates: start: 20121121
  2. CARBOPLATIN [Suspect]
     Indication: HER-2 POSITIVE BREAST CANCER
     Dosage: 6 AUC
     Route: 042
     Dates: start: 20121121
  3. HERCEPTIN [Suspect]
     Indication: HER-2 POSITIVE BREAST CANCER
     Route: 041
     Dates: start: 20121121
  4. LISINOPRIL [Concomitant]
     Indication: HYPERTENSION
     Dosage: 20 MG/25 MG
     Route: 048
     Dates: start: 2009
  5. AMLODIPINE BESYLATE [Concomitant]
     Indication: HYPERTENSION
     Route: 048
     Dates: start: 2009
  6. FERROUS SULFATE [Concomitant]
     Indication: ANAEMIA
     Route: 048
     Dates: start: 20121022
  7. K-DUR [Concomitant]
     Indication: HYPOKALAEMIA
     Route: 048
     Dates: start: 20121206
  8. TYLENOL [Concomitant]
     Indication: BACK PAIN
     Route: 048
     Dates: start: 20121219
  9. AMBIEN [Concomitant]
     Indication: INSOMNIA
     Route: 048
     Dates: start: 20121219

REACTIONS (2)
  - Febrile neutropenia [Recovered/Resolved]
  - Pneumonia [Recovered/Resolved]
